FAERS Safety Report 8063207-0 (Version None)
Quarter: 2012Q1

REPORT INFORMATION
  Report Type: 
  Country: None (occurrence: None)
  Receive Date: 20120123
  Receipt Date: 20120119
  Transmission Date: 20120608
  Serious: Yes (Death)
  Sender: FDA-Public Use
  Company Number: PHHY2012AR005057

PATIENT
  Sex: Male

DRUGS (1)
  1. EXELON [Suspect]
     Indication: COGNITIVE DISORDER
     Dosage: 10 CM (9.5 MG/24 HOURS) PATCH DAILY
     Route: 062
     Dates: end: 20110501

REACTIONS (1)
  - CARDIAC ARREST [None]
